FAERS Safety Report 25310333 (Version 1)
Quarter: 2025Q2

REPORT INFORMATION
  Report Type: Spontaneous
  Country: US (occurrence: US)
  Receive Date: 20250514
  Receipt Date: 20250514
  Transmission Date: 20250716
  Serious: No
  Sender: AJANTA PHARMA USA INC
  Company Number: US-AJANTA-2025AJA00050

PATIENT
  Sex: Male

DRUGS (3)
  1. RISPERIDONE [Suspect]
     Active Substance: RISPERIDONE
     Indication: Disturbance in attention
     Dates: start: 202502, end: 2025
  2. RISPERIDONE [Suspect]
     Active Substance: RISPERIDONE
     Dates: start: 20250318
  3. Dulex pro generic [Concomitant]

REACTIONS (4)
  - Loss of personal independence in daily activities [Unknown]
  - Feeling abnormal [Unknown]
  - Drug ineffective [Unknown]
  - Product quality issue [Unknown]

NARRATIVE: CASE EVENT DATE: 20250201
